FAERS Safety Report 8399381-6 (Version None)
Quarter: 2012Q2

REPORT INFORMATION
  Report Type: 
  Country: None (occurrence: None)
  Receive Date: 20120323
  Receipt Date: 20110106
  Transmission Date: 20120825
  Serious: Yes (Other)
  Sender: FDA-Public Use
  Company Number: 163-21880-11010759

PATIENT
  Age: 67 Year
  Sex: Female

DRUGS (22)
  1. CLOTRIMAZOLE [Concomitant]
  2. DEXAMETHASONE [Concomitant]
  3. TAMIFLU [Concomitant]
  4. METOPROLOL TARTRATE [Concomitant]
  5. CISPLATIN [Concomitant]
  6. FLUCONAZOLE [Concomitant]
  7. LOVENOX [Concomitant]
  8. GRANISETRON [Concomitant]
  9. DOXORUBICIN HCL [Concomitant]
  10. CYCLOPHOSPHAMIDE (CYCLOPHOSPHHAMIDE) [Concomitant]
  11. ALKERAN [Concomitant]
  12. ACYCLOVIR [Concomitant]
  13. OMEPRAZOLE [Concomitant]
  14. ETOPOSIDE [Concomitant]
  15. SENNA (SENNA) [Concomitant]
  16. REVLIMID [Suspect]
     Indication: MULTIPLE MYELOMA
     Dosage: 15 MG, 1 IN 1 D, PO
     Route: 048
     Dates: start: 20100301
  17. AZITHROMYCIN [Concomitant]
  18. LEVOFLOXACIN [Concomitant]
  19. EMEND [Concomitant]
  20. NEUPOGEN [Concomitant]
  21. PANTOPRAZOLE [Concomitant]
  22. VELCADE [Concomitant]

REACTIONS (2)
  - CONSTIPATION [None]
  - THROMBOSIS [None]
